FAERS Safety Report 5149517-5 (Version None)
Quarter: 2006Q4

REPORT INFORMATION
  Report Type: 
  Country: None (occurrence: None)
  Receive Date: 20061113
  Receipt Date: 20060307
  Transmission Date: 20070319
  Serious: No
  Sender: FDA-Public Use
  Company Number: US-GLAXOSMITHKLINE-A0596482A

PATIENT
  Age: 49 Year
  Sex: Male

DRUGS (2)
  1. COREG [Suspect]
     Indication: CHEST PAIN
     Dosage: 6.25MG TWICE PER DAY
     Route: 048
     Dates: start: 20060302
  2. LIPITOR [Concomitant]

REACTIONS (3)
  - DIZZINESS [None]
  - PAIN [None]
  - SOMNOLENCE [None]
